FAERS Safety Report 8680909 (Version 2)
Quarter: 2015Q3

REPORT INFORMATION
  Report Type: Report from Study
  Country: US (occurrence: US)
  Receive Date: 20120724
  Receipt Date: 20150911
  Transmission Date: 20151125
  Serious: Yes (Death)
  Sender: FDA-Public Use
  Company Number: US-ROCHE-1086832

PATIENT
  Sex: Male

DRUGS (4)
  1. ACTIVASE [Suspect]
     Active Substance: ALTEPLASE
     Indication: ACUTE MYOCARDIAL INFARCTION
     Route: 042
  2. ACTIVASE [Suspect]
     Active Substance: ALTEPLASE
     Route: 042
  3. ACTIVASE [Suspect]
     Active Substance: ALTEPLASE
     Route: 042
  4. MAGNESIUM SULFATE. [Concomitant]
     Active Substance: MAGNESIUM SULFATE
     Route: 042

REACTIONS (2)
  - Pallor [Unknown]
  - Death [Fatal]
